FAERS Safety Report 16152311 (Version 2)
Quarter: 2019Q3

REPORT INFORMATION
  Report Type: Report from Study
  Country: US (occurrence: US)
  Receive Date: 20190403
  Receipt Date: 20190809
  Transmission Date: 20191004
  Serious: Yes (Hospitalization, Other)
  Sender: FDA-Public Use
  Company Number: PHEH2019US014438

PATIENT
  Sex: Female

DRUGS (2)
  1. COSENTYX [Suspect]
     Active Substance: SECUKINUMAB
     Indication: PSORIASIS
     Dosage: 300 MG, QMO
     Route: 058
  2. COSENTYX [Suspect]
     Active Substance: SECUKINUMAB
     Dosage: 300 MG, QMO
     Route: 058
     Dates: start: 20190729

REACTIONS (7)
  - Stress [Unknown]
  - Amnesia [Unknown]
  - Depression [Unknown]
  - Diabetes mellitus [Unknown]
  - Psoriasis [Recovering/Resolving]
  - Mental disorder [Unknown]
  - Pruritus [Recovering/Resolving]
